FAERS Safety Report 8601100-2 (Version None)
Quarter: 2012Q3

REPORT INFORMATION
  Report Type: 
  Country: None (occurrence: None)
  Receive Date: 20120817
  Receipt Date: 20120813
  Transmission Date: 20120928
  Serious: Yes (Hospitalization, Other)
  Sender: FDA-Public Use
  Company Number: PHHO2012IL011851

PATIENT
  Sex: Male

DRUGS (11)
  1. APIDRA [Concomitant]
     Indication: TYPE 2 DIABETES MELLITUS
     Dosage: 60 IU, UNK
  2. ASPIRIN [Concomitant]
  3. ENOXAPARIN [Concomitant]
     Dosage: UNK
     Dates: start: 20120316, end: 20120320
  4. BETA BLOCKING AGENTS [Concomitant]
  5. ADENOSINE DIPHOSPHATE [Concomitant]
  6. TEGRETOL [Concomitant]
     Dosage: UNK
     Dates: start: 20111023
  7. METOPROLOL TARTRATE [Suspect]
     Dosage: 200 MG, UNK
  8. METOPROLOL TARTRATE [Suspect]
     Dosage: 100 MG, UNK
  9. METFORMIN HYDROCHLORIDE [Concomitant]
     Indication: TYPE 2 DIABETES MELLITUS
     Dosage: 1700 MG, UNK
  10. LANTUS [Concomitant]
     Indication: TYPE 2 DIABETES MELLITUS
     Dosage: 50 IU, UNK
  11. ANGIOTENSIN CONVERTING ENZYME BLOCKERS [Concomitant]

REACTIONS (3)
  - ANGINA PECTORIS [None]
  - NON-CARDIAC CHEST PAIN [None]
  - BRADYCARDIA [None]
